FAERS Safety Report 9138156 (Version 1)
Quarter: 2013Q1

REPORT INFORMATION
  Report Type: Spontaneous
  Country: MX (occurrence: CA)
  Receive Date: 20130304
  Receipt Date: 20130304
  Transmission Date: 20140127
  Serious: Yes (Other)
  Sender: FDA-Public Use
  Company Number: MX-MERCK-1303CAN000409

PATIENT
  Sex: 0

DRUGS (1)
  1. JANUMET [Suspect]
     Indication: DIABETES MELLITUS INADEQUATE CONTROL

REACTIONS (6)
  - Hypoglycaemia [Unknown]
  - Arthralgia [Unknown]
  - Back pain [Unknown]
  - Lumbar hernia [Unknown]
  - Lumbar spinal stenosis [Unknown]
  - Urticaria [Unknown]
